FAERS Safety Report 20685361 (Version 1)
Quarter: 2022Q2

REPORT INFORMATION
  Report Type: Spontaneous
  Country: RO (occurrence: RO)
  Receive Date: 20220407
  Receipt Date: 20220407
  Transmission Date: 20220721
  Serious: Yes (Hospitalization, Other)
  Sender: FDA-Public Use
  Company Number: RO-ViiV Healthcare Limited- RO2022EME035455

PATIENT
  Age: 21 Year
  Sex: Male

DRUGS (2)
  1. EMTRICITABINE\TENOFOVIR DISOPROXIL [Suspect]
     Active Substance: EMTRICITABINE\TENOFOVIR DISOPROXIL
     Indication: HIV infection
     Dosage: UNK
     Dates: start: 202001
  2. DOLUTEGRAVIR [Suspect]
     Active Substance: DOLUTEGRAVIR
     Indication: HIV infection
     Dosage: UNK
     Dates: start: 202001

REACTIONS (9)
  - Pyrexia [Unknown]
  - Weight decreased [Unknown]
  - Clostridium difficile infection [Unknown]
  - Mycobacterium avium complex infection [Unknown]
  - Abdominal pain [Unknown]
  - Diarrhoea [Unknown]
  - Vomiting [Unknown]
  - Immune reconstitution inflammatory syndrome [Unknown]
  - Campylobacter infection [Unknown]
